FAERS Safety Report 7408439-7 (Version None)
Quarter: 2011Q1

REPORT INFORMATION
  Report Type: 
  Country: None (occurrence: None)
  Receive Date: 20110301
  Receipt Date: 20100517
  Transmission Date: 20110831
  Serious: Yes (Disabling, Other)
  Sender: FDA-Public Use
  Company Number: ALA_00752_2010

PATIENT
  Sex: Male
  Weight: 78.9259 kg

DRUGS (18)
  1. MULTI-VITAMINS [Concomitant]
  2. REGLAN [Suspect]
     Indication: GASTROOESOPHAGEAL REFLUX DISEASE
     Dosage: (5 MG ORAL), (10 MG TABLET ORAL), (15 MG TABLET ORAL)
     Route: 048
     Dates: start: 20040914, end: 20050305
  3. REGLAN [Suspect]
     Indication: IMPAIRED GASTRIC EMPTYING
     Dosage: (5 MG ORAL), (10 MG TABLET ORAL), (15 MG TABLET ORAL)
     Route: 048
     Dates: start: 20040914, end: 20050305
  4. REGLAN [Suspect]
     Indication: GASTROOESOPHAGEAL REFLUX DISEASE
     Dosage: (5 MG ORAL), (10 MG TABLET ORAL), (15 MG TABLET ORAL)
     Route: 048
     Dates: start: 20030901, end: 20080301
  5. REGLAN [Suspect]
     Indication: IMPAIRED GASTRIC EMPTYING
     Dosage: (5 MG ORAL), (10 MG TABLET ORAL), (15 MG TABLET ORAL)
     Route: 048
     Dates: start: 20030901, end: 20080301
  6. REGLAN [Suspect]
     Indication: GASTROOESOPHAGEAL REFLUX DISEASE
     Dosage: (5 MG ORAL), (10 MG TABLET ORAL), (15 MG TABLET ORAL)
     Route: 048
     Dates: start: 20080301, end: 20081222
  7. REGLAN [Suspect]
     Indication: IMPAIRED GASTRIC EMPTYING
     Dosage: (5 MG ORAL), (10 MG TABLET ORAL), (15 MG TABLET ORAL)
     Route: 048
     Dates: start: 20080301, end: 20081222
  8. UNSPECIFIED HERBAL [Concomitant]
  9. DIOVAN [Concomitant]
  10. MAGNESIUM [Concomitant]
  11. CLIVE CLINIC'S PURE DIETARY SUPPLEMENTS [Concomitant]
  12. LISINOPRIL [Concomitant]
  13. PANTOPRAZOLE SODIUM [Concomitant]
  14. PROMETHAZINE [Concomitant]
  15. ASPIRIN [Concomitant]
  16. DOXAZOSIN [Concomitant]
  17. CALCIUM [Concomitant]
  18. AMLODIPINE BESYLATE [Concomitant]

REACTIONS (1)
  - TARDIVE DYSKINESIA [None]
